FAERS Safety Report 18469126 (Version 1)
Quarter: 2020Q4

REPORT INFORMATION
  Report Type: Spontaneous
  Country: TR (occurrence: TR)
  Receive Date: 20201105
  Receipt Date: 20201105
  Transmission Date: 20210114
  Serious: Yes (Other)
  Sender: FDA-Public Use
  Company Number: TR-TEVA-2020-TR-1846722

PATIENT

DRUGS (1)
  1. TETRADOX [DOXYCYCLINE] [Suspect]
     Active Substance: DOXYCYCLINE
     Indication: PRODUCT USED FOR UNKNOWN INDICATION
     Dosage: TETRADOX 100 MG CAPSULE
     Route: 048

REACTIONS (2)
  - Feeding disorder [Unknown]
  - General physical health deterioration [Unknown]

NARRATIVE: CASE EVENT DATE: 202010
